FAERS Safety Report 19319301 (Version 1)
Quarter: 2021Q2

REPORT INFORMATION
  Report Type: Spontaneous
  Country: CA (occurrence: CA)
  Receive Date: 20210527
  Receipt Date: 20210527
  Transmission Date: 20210717
  Serious: Yes (Hospitalization)
  Sender: FDA-Public Use
  Company Number: CA-PFIZER INC-2021575026

PATIENT
  Age: 26 Year
  Sex: Female
  Weight: 50 kg

DRUGS (9)
  1. CELEBREX [Suspect]
     Active Substance: CELECOXIB
     Indication: PROCEDURAL PAIN
     Dosage: 100 MG, 1X/DAY
     Route: 048
  2. AVIANE [Concomitant]
     Active Substance: ETHINYL ESTRADIOL\LEVONORGESTREL
  3. DIMENHYDRINATE. [Concomitant]
     Active Substance: DIMENHYDRINATE
  4. DOCUSATE SODIUM. [Concomitant]
     Active Substance: DOCUSATE SODIUM
  5. QUETIAPINE. [Concomitant]
     Active Substance: QUETIAPINE
  6. TRIATEC [CODEINE PHOSPHATE;PARACETAMOL] [Concomitant]
     Active Substance: ACETAMINOPHEN\CODEINE PHOSPHATE
  7. OXYCODONE [Concomitant]
     Active Substance: OXYCODONE
  8. SENNOSIDES. [Concomitant]
     Active Substance: SENNOSIDES
  9. TRANSDERM V [Concomitant]
     Active Substance: SCOPOLAMINE

REACTIONS (7)
  - Abdominal pain upper [Recovered/Resolved]
  - Hypoglycaemia [Recovered/Resolved]
  - Dehydration [Recovered/Resolved]
  - Gastritis [Recovered/Resolved]
  - Nausea [Recovered/Resolved]
  - Syncope [Recovered/Resolved]
  - Vomiting [Recovered/Resolved]
